FAERS Safety Report 24454543 (Version 2)
Quarter: 2024Q4

REPORT INFORMATION
  Report Type: Report from Study
  Country: US (occurrence: US)
  Receive Date: 20241017
  Receipt Date: 20241018
  Transmission Date: 20250115
  Serious: No
  Sender: ROCHE
  Company Number: US-ROCHE-3470949

PATIENT
  Age: 61 Year
  Sex: Male

DRUGS (7)
  1. RITUXAN [Suspect]
     Active Substance: RITUXIMAB
     Indication: Lichen planus
     Dosage: INFUSE 1000MG INTRAVENOUSLY ON DAY(S) 1 AND DAY(S) 15 AS DIRECTED
     Route: 042
  2. ALFUZOSIN [Concomitant]
     Active Substance: ALFUZOSIN
  3. CELECOXIB [Concomitant]
     Active Substance: CELECOXIB
  4. HYDROCHLOROTHIAZIDE [Concomitant]
     Active Substance: HYDROCHLOROTHIAZIDE
  5. LOSARTAN [Concomitant]
     Active Substance: LOSARTAN
  6. METOPROLOL SUCCINATE [Concomitant]
     Active Substance: METOPROLOL SUCCINATE
  7. PROTONIX [Concomitant]
     Active Substance: PANTOPRAZOLE SODIUM

REACTIONS (4)
  - Retinal tear [Unknown]
  - Vision blurred [Not Recovered/Not Resolved]
  - Metamorphopsia [Not Recovered/Not Resolved]
  - Off label use [Unknown]

NARRATIVE: CASE EVENT DATE: 20220801
